FAERS Safety Report 4589654-7 (Version None)
Quarter: 2005Q1

REPORT INFORMATION
  Report Type: 
  Country: None (occurrence: None)
  Receive Date: 20050223
  Receipt Date: 20050105
  Transmission Date: 20050727
  Serious: Yes (Hospitalization)
  Sender: FDA-Public Use
  Company Number: FR-ROCHE-391539

PATIENT
  Age: 51 Year
  Sex: Male
  Weight: 72 kg

DRUGS (2)
  1. KYTRIL [Suspect]
     Indication: CHEMOTHERAPY
     Route: 042
  2. KYTRIL [Suspect]
     Route: 042
     Dates: start: 20050105, end: 20050105

REACTIONS (5)
  - ANAPHYLACTIC SHOCK [None]
  - HYPERSENSITIVITY [None]
  - HYPOTENSION [None]
  - LOSS OF CONSCIOUSNESS [None]
  - MYOCARDIAL ISCHAEMIA [None]
